FAERS Safety Report 4935296-0 (Version None)
Quarter: 2006Q1

REPORT INFORMATION
  Report Type: 
  Country: None (occurrence: None)
  Receive Date: 20060302
  Receipt Date: 20060210
  Transmission Date: 20060701
  Serious: Yes (Other)
  Sender: FDA-Public Use
  Company Number: USA0506100587

PATIENT
  Age: 65 Year
  Sex: Female
  Weight: 69.8 kg

DRUGS (9)
  1. FORTEO [Suspect]
     Indication: OSTEOPOROSIS
     Dosage: 20 UG
     Dates: start: 20050413
  2. FORTEO [Suspect]
  3. FORTEO [Concomitant]
  4. CALCIUM GLUCONATE [Concomitant]
  5. MULTIVITAMINS, PLAIN [Concomitant]
  6. LIPITOR [Concomitant]
  7. ELAVIL (AMITRIPYTLINE HYDROCHLORIDE) [Concomitant]
  8. XANAX /USA/ (ALPRAZOLAM) [Concomitant]
  9. PERCOCET [Concomitant]

REACTIONS (21)
  - ABDOMINAL PAIN UPPER [None]
  - ADENOCARCINOMA [None]
  - ADENOMA BENIGN [None]
  - BIOPSY COLON ABNORMAL [None]
  - CHEST PAIN [None]
  - COLONIC POLYP [None]
  - CONSTIPATION [None]
  - DIARRHOEA [None]
  - DIVERTICULITIS [None]
  - EMPHYSEMA [None]
  - FATIGUE [None]
  - INJECTION SITE ERYTHEMA [None]
  - LYMPHADENOPATHY [None]
  - NAUSEA [None]
  - PAIN [None]
  - PANCREATIC CYST [None]
  - PANCREATIC DISORDER [None]
  - PHARMACEUTICAL PRODUCT COMPLAINT [None]
  - PSEUDOCYST [None]
  - ULTRASOUND ABDOMEN ABNORMAL [None]
  - VOMITING [None]
